FAERS Safety Report 8247899 (Version 3)
Quarter: 2013Q2

REPORT INFORMATION
  Report Type: Spontaneous
  Country: JP (occurrence: JP)
  Receive Date: 20111116
  Receipt Date: 20130429
  Transmission Date: 20140414
  Serious: Yes (Hospitalization)
  Sender: FDA-Public Use
  Company Number: JP-NOVOPROD-338705

PATIENT
  Age: 68 Year
  Sex: Female
  Weight: 53 kg

DRUGS (9)
  1. NOVOLIN N CHU FLEXPEN [Suspect]
     Indication: TYPE 2 DIABETES MELLITUS
     Dosage: UNK
     Route: 058
  2. NOVORAPID CHU FLEXPEN [Suspect]
     Indication: TYPE 2 DIABETES MELLITUS
     Dosage: THRICE-DAILY INJECTION
     Route: 058
  3. NOVOLIN R CHU FLEXPEN [Suspect]
     Dosage: 17 U, QD
     Route: 058
  4. NOVOLIN R CHU FLEXPEN [Suspect]
     Dosage: 12 U, QD (6+6)
  5. NOVOLIN R CHU FLEXPEN [Suspect]
     Dosage: 8 U, QD (4+4)
  6. NOVOLIN R CHU FLEXPEN [Suspect]
     Dosage: 3 U, QD
  7. APIDRA [Suspect]
  8. VOGLIBOSE [Concomitant]
     Dosage: 0.6 MG, QD
     Route: 048
  9. ALOGLIPTIN [Concomitant]
     Dosage: 9.375 MG, QD

REACTIONS (1)
  - Anti-insulin antibody positive [Recovered/Resolved]
